FAERS Safety Report 18235810 (Version 5)
Quarter: 2021Q1

REPORT INFORMATION
  Report Type: Report from Study
  Country: IN (occurrence: IN)
  Receive Date: 20200905
  Receipt Date: 20210306
  Transmission Date: 20210419
  Serious: Yes (Other)
  Sender: FDA-Public Use
  Company Number: NVSC2020IN242464

PATIENT
  Age: 66 Year
  Sex: Female

DRUGS (4)
  1. PIVIKTO [Suspect]
     Active Substance: ALPELISIB
     Dosage: 250 MG, QD
     Route: 048
     Dates: start: 20200924, end: 20200926
  2. PIVIKTO [Suspect]
     Active Substance: ALPELISIB
     Dosage: 300 MG, QD
     Route: 048
  3. PIVIKTO [Suspect]
     Active Substance: ALPELISIB
     Dosage: 150 MG, BID
     Route: 048
     Dates: start: 20200907, end: 20200923
  4. PIVIKTO [Suspect]
     Active Substance: ALPELISIB
     Indication: BREAST CANCER METASTATIC
     Dosage: 150 MG, BID
     Route: 048
     Dates: start: 20200806, end: 20200906

REACTIONS (10)
  - Blood glucose increased [Not Recovered/Not Resolved]
  - Rash [Unknown]
  - Dry mouth [Not Recovered/Not Resolved]
  - Weight decreased [Unknown]
  - COVID-19 [Unknown]
  - Decreased appetite [Not Recovered/Not Resolved]
  - Fatigue [Not Recovered/Not Resolved]
  - Diabetes mellitus inadequate control [Not Recovered/Not Resolved]
  - Hernia [Unknown]
  - Nausea [Not Recovered/Not Resolved]

NARRATIVE: CASE EVENT DATE: 202008
